FAERS Safety Report 10777056 (Version 3)
Quarter: 2015Q2

REPORT INFORMATION
  Report Type: Spontaneous
  Country: US (occurrence: US)
  Receive Date: 20150209
  Receipt Date: 20150413
  Transmission Date: 20150821
  Serious: Yes (Other)
  Sender: FDA-Public Use
  Company Number: US-PFIZER INC-2015049902

PATIENT
  Sex: Female

DRUGS (1)
  1. CELEBREX [Suspect]
     Active Substance: CELECOXIB
     Dosage: STRENGTH 200MG

REACTIONS (6)
  - Back disorder [Unknown]
  - Musculoskeletal discomfort [Unknown]
  - Viral upper respiratory tract infection [Unknown]
  - Arthropathy [Unknown]
  - Sneezing [Unknown]
  - Feeling abnormal [Unknown]
